FAERS Safety Report 24992927 (Version 2)
Quarter: 2025Q2

REPORT INFORMATION
  Report Type: Spontaneous
  Country: US (occurrence: US)
  Receive Date: 20250221
  Receipt Date: 20250410
  Transmission Date: 20250716
  Serious: No
  Sender: GRANULES INDIA
  Company Number: US-GRANULES-US-2025GRASPO00068

PATIENT
  Age: 58 Year
  Sex: Female

DRUGS (2)
  1. ACETAMINOPHEN [Suspect]
     Active Substance: ACETAMINOPHEN
     Indication: Pyrexia
     Dosage: 2 CAPLETS IN THE MORNING AND TOOK ANOTHER 2 CAPLETS AGAIN
     Route: 065
     Dates: start: 20250203
  2. ACETAMINOPHEN [Suspect]
     Active Substance: ACETAMINOPHEN
     Indication: Pain

REACTIONS (2)
  - Headache [Unknown]
  - Drug ineffective [Unknown]

NARRATIVE: CASE EVENT DATE: 20250203
